FAERS Safety Report 22942000 (Version 5)
Quarter: 2024Q2

REPORT INFORMATION
  Report Type: Spontaneous
  Country: US (occurrence: US)
  Receive Date: 20230914
  Receipt Date: 20240501
  Transmission Date: 20240715
  Serious: Yes (Other)
  Sender: FDA-Public Use
  Company Number: US-UCBSA-2023018163

PATIENT
  Sex: Female

DRUGS (2)
  1. CIMZIA [Suspect]
     Active Substance: CERTOLIZUMAB PEGOL
     Indication: Rheumatoid arthritis
     Dosage: 400 MILLIGRAM, EV 2 WEEKS(QOW)
     Route: 058
     Dates: start: 202302
  2. CIMZIA [Suspect]
     Active Substance: CERTOLIZUMAB PEGOL
     Dosage: 200 MILLIGRAM, EV 2 WEEKS(QOW)
     Route: 058
     Dates: start: 202304

REACTIONS (10)
  - Rheumatoid arthritis [Unknown]
  - Sjogren^s syndrome [Unknown]
  - Injection site swelling [Unknown]
  - Injection site discolouration [Unknown]
  - Injection site erythema [Unknown]
  - Pain in extremity [Unknown]
  - Sleep apnoea syndrome [Unknown]
  - Asthenia [Unknown]
  - Fibromyalgia [Unknown]
  - Carpal tunnel syndrome [Unknown]

NARRATIVE: CASE EVENT DATE: 20230101
